FAERS Safety Report 9355638 (Version 1)
Quarter: 2013Q2

REPORT INFORMATION
  Report Type: Spontaneous
  Country: FR (occurrence: FR)
  Receive Date: 20130619
  Receipt Date: 20130619
  Transmission Date: 20140414
  Serious: Yes (Life-Threatening)
  Sender: FDA-Public Use
  Company Number: FR-BRISTOL-MYERS SQUIBB COMPANY-19022227

PATIENT
  Age: 74 Year
  Sex: Female

DRUGS (4)
  1. GLUCOPHAGE TABS 500 MG [Suspect]
     Indication: DIABETES MELLITUS
     Dosage: 1DF: 2
     Route: 048
     Dates: start: 20130321, end: 20130329
  2. AUGMENTIN [Suspect]
     Indication: PNEUMONIA
     Dosage: 1DF: 3
     Dates: start: 20130321, end: 20130328
  3. MOTILIUM [Concomitant]
     Dates: start: 20130321, end: 20130329
  4. LOVENOX [Concomitant]
     Dates: start: 20130321

REACTIONS (2)
  - Erythema [Recovered/Resolved]
  - Pruritus [Recovered/Resolved]
